FAERS Safety Report 25987474 (Version 1)
Quarter: 2025Q4

REPORT INFORMATION
  Report Type: Spontaneous
  Country: GB (occurrence: GB)
  Receive Date: 20251103
  Receipt Date: 20251103
  Transmission Date: 20260117
  Serious: No
  Sender: ALKEM
  Company Number: None

PATIENT
  Sex: Female
  Weight: 65 kg

DRUGS (2)
  1. IBUPROFEN [Suspect]
     Active Substance: IBUPROFEN
     Indication: Headache
     Dosage: UNK
     Route: 065
  2. TRANEXAMIC ACID [Suspect]
     Active Substance: TRANEXAMIC ACID
     Indication: Haemorrhage
     Dosage: UNK
     Route: 065
     Dates: start: 20250218, end: 20250319

REACTIONS (1)
  - Abdominal pain [Recovering/Resolving]

NARRATIVE: CASE EVENT DATE: 20250319
